FAERS Safety Report 7366129-3 (Version None)
Quarter: 2011Q1

REPORT INFORMATION
  Report Type: 
  Country: None (occurrence: None)
  Receive Date: 20110322
  Receipt Date: 20110308
  Transmission Date: 20110831
  Serious: Yes (Hospitalization)
  Sender: FDA-Public Use
  Company Number: US-JNJFOC-20080200127

PATIENT
  Sex: Female
  Weight: 35.45 kg

DRUGS (6)
  1. MESALAMINE [Concomitant]
     Route: 048
  2. INFLIXIMAB [Suspect]
     Indication: PROCTITIS
     Route: 042
  3. INFLIXIMAB [Suspect]
     Indication: CROHN'S DISEASE
     Route: 042
  4. INFLIXIMAB [Suspect]
     Route: 042
  5. INFLIXIMAB [Suspect]
     Route: 042
  6. PREDNISONE [Concomitant]

REACTIONS (2)
  - FISTULA [None]
  - VULVAL ABSCESS [None]
